FAERS Safety Report 4673106-X (Version None)
Quarter: 2005Q2

REPORT INFORMATION
  Report Type: 
  Country: None (occurrence: None)
  Receive Date: 20050525
  Receipt Date: 20050517
  Transmission Date: 20051028
  Serious: Yes (Hospitalization)
  Sender: FDA-Public Use
  Company Number: US-ABBOTT-05P-163-0300642-00

PATIENT
  Sex: Female
  Weight: 73.548 kg

DRUGS (12)
  1. HUMIRA [Suspect]
     Indication: RHEUMATOID ARTHRITIS
     Route: 058
     Dates: start: 20030101
  2. ATENOLOL [Concomitant]
     Indication: BLOOD PRESSURE
     Route: 048
  3. HYDROCHLOROTHIAZIDE [Concomitant]
     Indication: BLOOD PRESSURE
     Route: 048
  4. PAROXETINE HYDROCHLORIDE [Concomitant]
     Indication: DEPRESSION
     Route: 048
  5. CLONAZEPAM [Concomitant]
     Indication: INSOMNIA
     Route: 048
  6. METHYLPHENIDATE HCL [Concomitant]
     Indication: ENERGY INCREASED
     Route: 048
     Dates: start: 20040101
  7. PROVELLA-14 [Concomitant]
     Indication: HYSTERECTOMY
     Route: 048
  8. ERGOCALCIFEROL [Concomitant]
     Indication: HYPOVITAMINOSIS
     Route: 048
     Dates: start: 20050201
  9. LORACET PLUS [Concomitant]
     Indication: PAIN
     Dosage: 7.5/650 MILLIGRAMS
     Route: 048
  10. RABEPRAZOLE SODIUM [Concomitant]
     Indication: GASTROOESOPHAGEAL REFLUX DISEASE
     Route: 048
     Dates: start: 20040101
  11. DONNATAL [Concomitant]
     Indication: ABDOMINAL PAIN UPPER
     Route: 048
  12. LOMOTIL [Concomitant]
     Indication: GASTRIC DISORDER
     Route: 048

REACTIONS (1)
  - CARTILAGE INJURY [None]
